FAERS Safety Report 23271973 (Version 2)
Quarter: 2024Q1

REPORT INFORMATION
  Report Type: Spontaneous
  Country: US (occurrence: US)
  Receive Date: 20231207
  Receipt Date: 20240103
  Transmission Date: 20240409
  Serious: Yes (Other)
  Sender: FDA-Public Use
  Company Number: US-BRISTOL-MYERS SQUIBB COMPANY-2023-176749

PATIENT
  Age: 65 Year
  Sex: Male
  Weight: 99.34 kg

DRUGS (1)
  1. REVLIMID [Suspect]
     Active Substance: LENALIDOMIDE
     Indication: Plasma cell myeloma
     Dosage: 2WKSON, 1WK OFF
     Route: 048

REACTIONS (3)
  - Thrombosis [Unknown]
  - Off label use [Unknown]
  - Spinal disorder [Unknown]
